FAERS Safety Report 9163960 (Version 2)
Quarter: 2013Q2

REPORT INFORMATION
  Report Type: Spontaneous
  Country: US (occurrence: US)
  Receive Date: 20130314
  Receipt Date: 20130503
  Transmission Date: 20140414
  Serious: No
  Sender: FDA-Public Use
  Company Number: US-ASTRAZENECA-2013SE14770

PATIENT
  Age: 82 Year
  Sex: Female
  Weight: 54.9 kg

DRUGS (17)
  1. SYMBICORT [Suspect]
     Indication: CHRONIC OBSTRUCTIVE PULMONARY DISEASE
     Dosage: 80/4.5 MCG, 2 PUFFS, BID
     Route: 055
     Dates: start: 20130219
  2. OMEPRAZOLE [Suspect]
     Indication: DYSPEPSIA
     Route: 048
  3. OMEPRAZOLE [Suspect]
     Indication: DYSPEPSIA
     Route: 048
  4. SIMVASTATIN [Concomitant]
     Indication: BLOOD CHOLESTEROL ABNORMAL
     Route: 048
  5. LOSARTAN POTASSIUM [Concomitant]
     Indication: HYPERTENSION
     Route: 048
  6. TRIAMTERENE [Concomitant]
     Indication: HYPERTENSION
     Route: 048
  7. COMBIVENT [Concomitant]
     Indication: INHALATION THERAPY
     Dosage: BID
     Route: 055
  8. COMBIVENT [Concomitant]
     Indication: INHALATION THERAPY
     Dosage: ONCE A WEEK
     Route: 055
  9. COMBIVENT [Concomitant]
     Indication: INHALATION THERAPY
     Dosage: PRN
     Route: 055
  10. CALCIUM [Concomitant]
     Route: 048
  11. MULTIVITAMIN [Concomitant]
     Dosage: DAILY
     Route: 048
  12. VITAMIN D [Concomitant]
     Route: 048
     Dates: start: 1993
  13. IRON [Concomitant]
     Route: 048
  14. OCUVITE [Concomitant]
     Route: 048
  15. FISH OIL [Concomitant]
     Route: 048
  16. ALENDRONATE [Concomitant]
     Indication: OSTEOPOROSIS
     Dates: start: 2003, end: 2008
  17. OXYGEN [Concomitant]
     Dosage: 2 L NASAL CANNULA DURING SLEEP

REACTIONS (5)
  - Osteoporosis [Unknown]
  - Macular degeneration [Unknown]
  - Body height decreased [Unknown]
  - Off label use [Unknown]
  - Drug dose omission [Unknown]
